FAERS Safety Report 8882994 (Version 1)
Quarter: 2012Q4

REPORT INFORMATION
  Report Type: 
  Country: US (occurrence: US)
  Receive Date: 20121102
  Receipt Date: 20121102
  Transmission Date: 20130627
  Serious: No
  Sender: FDA-Public Use
  Company Number: US-ASTRAZENECA-2011SE73249

PATIENT
  Age: 53 Year
  Sex: Female
  Weight: 74.8 kg

DRUGS (2)
  1. CRESTOR [Suspect]
     Indication: BLOOD CHOLESTEROL INCREASED
     Route: 048
     Dates: start: 201111, end: 201111
  2. LEVOTHYROXINE [Concomitant]
     Indication: THYROID DISORDER

REACTIONS (3)
  - Dyspnoea [Recovered/Resolved]
  - Palpitations [Recovered/Resolved]
  - Fear [Recovered/Resolved]
